FAERS Safety Report 6019534-1 (Version None)
Quarter: 2008Q4

REPORT INFORMATION
  Report Type: 
  Country: None (occurrence: None)
  Receive Date: 20081222
  Receipt Date: 20080909
  Transmission Date: 20090506
  Serious: Yes (Other)
  Sender: FDA-Public Use
  Company Number: US-WYE-H05946208

PATIENT
  Age: 43 Year
  Sex: Female

DRUGS (1)
  1. LYBREL [Suspect]
     Dosage: 1 TABLET 1X PER 1 DAY, ORAL
     Route: 048

REACTIONS (3)
  - ANAEMIA [None]
  - DRUG INEFFECTIVE [None]
  - METRORRHAGIA [None]
